FAERS Safety Report 8197657-9 (Version None)
Quarter: 2012Q1

REPORT INFORMATION
  Report Type: 
  Country: None (occurrence: None)
  Receive Date: 20120309
  Receipt Date: 20120307
  Transmission Date: 20120608
  Serious: Yes (Death)
  Sender: FDA-Public Use
  Company Number: US-PFIZER INC-2012061211

PATIENT
  Sex: Male

DRUGS (3)
  1. AMARYL [Concomitant]
     Dosage: UNK
  2. NORVASC [Suspect]
     Dosage: UNK
  3. FUROSEMIDE [Concomitant]
     Dosage: UNK

REACTIONS (1)
  - SUDDEN DEATH [None]
